FAERS Safety Report 5307651-0 (Version None)
Quarter: 2007Q2

REPORT INFORMATION
  Report Type: 
  Country: None (occurrence: None)
  Receive Date: 20070418
  Receipt Date: 20070402
  Transmission Date: 20071010
  Serious: Yes (Other)
  Sender: FDA-Public Use
  Company Number: 6031638

PATIENT
  Sex: Female

DRUGS (1)
  1. FLUCAZOLE (150 MG, TABLET)  (FLUCONAZOLE) [Suspect]
     Indication: VAGINAL CANDIDIASIS
     Dosage: 21,4286 MG (150 MG, 1 IN 1 WK), ORAL
     Route: 048

REACTIONS (2)
  - ABORTION SPONTANEOUS [None]
  - DRUG EXPOSURE DURING PREGNANCY [None]
